FAERS Safety Report 6007137-4 (Version None)
Quarter: 2008Q4

REPORT INFORMATION
  Report Type: 
  Country: None (occurrence: None)
  Receive Date: 20081217
  Receipt Date: 20080227
  Transmission Date: 20090506
  Serious: No
  Sender: FDA-Public Use
  Company Number: US-ASTRAZENECA-2008UW01929

PATIENT
  Sex: Female
  Weight: 65.8 kg

DRUGS (3)
  1. CRESTOR [Suspect]
     Indication: HYPERCHOLESTEROLAEMIA
     Route: 048
     Dates: start: 20071001, end: 20080101
  2. CRESTOR [Suspect]
     Route: 048
     Dates: start: 20080201
  3. MICARDIS HCT [Concomitant]

REACTIONS (5)
  - ABDOMINAL DISCOMFORT [None]
  - ARTHRALGIA [None]
  - ASTHENIA [None]
  - MYALGIA [None]
  - PAIN IN EXTREMITY [None]
